FAERS Safety Report 8463586-6 (Version None)
Quarter: 2012Q2

REPORT INFORMATION
  Report Type: 
  Country: None (occurrence: None)
  Receive Date: 20120625
  Receipt Date: 20120614
  Transmission Date: 20120825
  Serious: Yes (Hospitalization)
  Sender: FDA-Public Use
  Company Number: US-ASTRAZENECA-2012SE39850

PATIENT
  Age: 59 Year
  Sex: Female
  Weight: 108 kg

DRUGS (8)
  1. SEROQUEL XR [Suspect]
     Indication: IRRITABILITY
     Route: 048
  2. SEROQUEL XR [Suspect]
     Route: 048
     Dates: start: 20120101
  3. HEART MEDICATION [Concomitant]
     Indication: BLOOD CHOLESTEROL ABNORMAL
  4. SEROQUEL XR [Suspect]
     Indication: SLEEP DISORDER
     Route: 048
  5. SEROQUEL XR [Suspect]
     Indication: BIPOLAR DISORDER
     Route: 048
  6. SEROQUEL XR [Suspect]
     Route: 048
     Dates: start: 20120101
  7. SEROQUEL XR [Suspect]
     Route: 048
     Dates: start: 20120101
  8. XANAX [Concomitant]
     Indication: PAIN

REACTIONS (6)
  - ADVERSE EVENT [None]
  - BACK PAIN [None]
  - NAUSEA [None]
  - GASTROENTERITIS VIRAL [None]
  - DIZZINESS [None]
  - OEDEMA PERIPHERAL [None]
